FAERS Safety Report 16847170 (Version 1)
Quarter: 2019Q3

REPORT INFORMATION
  Report Type: Spontaneous
  Country: CH (occurrence: CH)
  Receive Date: 20190924
  Receipt Date: 20190924
  Transmission Date: 20191005
  Serious: Yes (Death, Other)
  Sender: FDA-Public Use
  Company Number: CH-ALLERGAN-1938070US

PATIENT
  Sex: Male

DRUGS (1)
  1. OZURDEX [Suspect]
     Active Substance: DEXAMETHASONE
     Indication: MACULAR OEDEMA
     Dosage: 0.7 MG, SINGLE
     Route: 031
     Dates: start: 20190710, end: 20190710

REACTIONS (3)
  - General physical health deterioration [Fatal]
  - Device dislocation [Recovered/Resolved]
  - Corneal decompensation [Recovered/Resolved]

NARRATIVE: CASE EVENT DATE: 20190722
